FAERS Safety Report 7466797-1 (Version None)
Quarter: 2011Q2

REPORT INFORMATION
  Report Type: 
  Country: None (occurrence: None)
  Receive Date: 20110509
  Receipt Date: 20110427
  Transmission Date: 20111010
  Serious: Yes (Other)
  Sender: FDA-Public Use
  Company Number: US-MERCK-0806USA02257

PATIENT
  Age: 42 Year
  Sex: Female

DRUGS (8)
  1. LAMICTAL [Concomitant]
     Route: 065
  2. NORCO [Concomitant]
     Route: 065
  3. FOSAMAX [Suspect]
     Indication: OSTEOPOROSIS
     Route: 048
     Dates: start: 20040101
  4. PRAZOSIN [Concomitant]
     Route: 065
  5. [THERAPY UNSPECIFIED] [Concomitant]
     Route: 065
  6. LITHIUM CARBONATE [Concomitant]
     Route: 065
  7. ATENOLOL [Concomitant]
     Route: 065
  8. AMBIEN [Concomitant]
     Route: 065

REACTIONS (8)
  - BONE FORMATION INCREASED [None]
  - ARTHRALGIA [None]
  - SURGERY [None]
  - GASTRITIS [None]
  - PAIN IN EXTREMITY [None]
  - VOMITING [None]
  - TRISMUS [None]
  - MUSCLE SPASMS [None]
